FAERS Safety Report 4314382-2 (Version None)
Quarter: 2004Q1

REPORT INFORMATION
  Report Type: 
  Country: None (occurrence: None)
  Receive Date: 20040308
  Receipt Date: 20040302
  Transmission Date: 20041129
  Serious: Yes (Life-Threatening, Hospitalization, Other)
  Sender: FDA-Public Use
  Company Number: HQWYE551323JAN04

PATIENT
  Age: 2 Year
  Sex: Female
  Weight: 13.5 kg

DRUGS (7)
  1. MYLOTARG [Suspect]
     Indication: ACUTE MYELOID LEUKAEMIA
     Dosage: 1.8 MG 1 X PER 1 DAY, INTRAVENOUS
     Route: 042
     Dates: start: 20031216, end: 20031216
  2. CYTARABINE [Suspect]
     Dosage: 60 MG OVER 30 MINUTES TIMES 16 DOSES INTRAVENOUS
     Route: 042
     Dates: start: 20031216
  3. DADUNORUBICIN (DAUNORUBICIN) [Suspect]
     Dosage: 30 MG OVER 6 HOURS, INTRAVENOUS
     Route: 042
     Dates: start: 20031216, end: 20031216
  4. DADUNORUBICIN (DAUNORUBICIN) [Suspect]
     Dosage: 30 MG OVER 6 HOURS, INTRAVENOUS
     Route: 042
     Dates: start: 20031218, end: 20031218
  5. DADUNORUBICIN (DAUNORUBICIN) [Suspect]
     Dosage: 30 MG OVER 6 HOURS, INTRAVENOUS
     Route: 042
     Dates: start: 20031221, end: 20031221
  6. ETOPOSIDE [Suspect]
     Dosage: 60 MG OVER 4 HOURS, INTRAVENOUS
     Route: 042
     Dates: start: 20031216, end: 20031216
  7. ANTIBIOTICS (ANTIBIOTICS) [Concomitant]

REACTIONS (14)
  - ABDOMINAL DISTENSION [None]
  - ASCITES [None]
  - BONE MARROW TRANSPLANT [None]
  - CATHETER RELATED INFECTION [None]
  - DECREASED APPETITE [None]
  - DYSPNOEA [None]
  - HAEMOGLOBIN DECREASED [None]
  - INFREQUENT BOWEL MOVEMENTS [None]
  - PLATELET COUNT DECREASED [None]
  - PLEURAL EFFUSION [None]
  - PYREXIA [None]
  - STREPTOCOCCAL SEPSIS [None]
  - VENOOCCLUSIVE LIVER DISEASE [None]
  - WHITE BLOOD CELL COUNT DECREASED [None]
